FAERS Safety Report 4875653-4 (Version None)
Quarter: 2005Q4

REPORT INFORMATION
  Report Type: 
  Country: None (occurrence: None)
  Receive Date: 20051223
  Receipt Date: 20051014
  Transmission Date: 20060501
  Serious: Yes (Death)
  Sender: FDA-Public Use
  Company Number: 05P-163-0309711-00

PATIENT
  Age: 62 Year
  Sex: Male
  Weight: 84.8226 kg

DRUGS (7)
  1. HUMIRA [Suspect]
     Indication: RHEUMATOID ARTHRITIS
     Dosage: 40 MG, 1 IN 2 WK, SUBCUTANEOUS
     Route: 058
     Dates: start: 20050301
  2. NABUMETONE [Concomitant]
  3. ALLOPURINOL [Concomitant]
  4. PREDNISONE [Concomitant]
  5. ALENDRONATE SODIUM [Concomitant]
  6. COLCHICINE [Concomitant]
  7. TOPROL [Concomitant]

REACTIONS (1)
  - DEATH [None]
